FAERS Safety Report 5653886-7 (Version None)
Quarter: 2008Q1

REPORT INFORMATION
  Report Type: 
  Country: None (occurrence: None)
  Receive Date: 20080306
  Receipt Date: 20080228
  Transmission Date: 20080703
  Serious: Yes (Hospitalization, Other)
  Sender: FDA-Public Use
  Company Number: JP-PFIZER INC-2007039363

PATIENT
  Age: 75 Year
  Sex: Male

DRUGS (13)
  1. CABERGOLINE [Suspect]
     Indication: PARKINSON'S DISEASE
     Dates: start: 20001011, end: 20050506
  2. GLYSENNID [Concomitant]
  3. SELEGILINE HYDROCHLORIDE [Concomitant]
  4. ACENALIN [Concomitant]
  5. ALL OTHER THERAPEUTIC PRODUCTS [Concomitant]
  6. FAMOTIDINE [Concomitant]
  7. SYMMETREL [Concomitant]
  8. ZONISAMIDE [Concomitant]
  9. MADOPAR [Concomitant]
  10. ARTANE [Concomitant]
  11. PARLODEL [Concomitant]
  12. MAGNESIUM OXIDE [Concomitant]
  13. EC DOPARL [Concomitant]

REACTIONS (2)
  - AORTIC VALVE INCOMPETENCE [None]
  - CARDIAC FAILURE [None]
